FAERS Safety Report 16692934 (Version 1)
Quarter: 2019Q3

REPORT INFORMATION
  Report Type: Report from Study
  Country: US (occurrence: US)
  Receive Date: 20190812
  Receipt Date: 20190812
  Transmission Date: 20191004
  Serious: Yes (Hospitalization, Other)
  Sender: FDA-Public Use
  Company Number: US-MYLANLABS-2019M1074194

PATIENT
  Age: 76 Year
  Sex: Male
  Weight: 95.25 kg

DRUGS (27)
  1. METFORMIN [Concomitant]
     Active Substance: METFORMIN HYDROCHLORIDE
  2. METOPROLOL. [Concomitant]
     Active Substance: METOPROLOL
  3. LISINOPRIL HCTZ [Concomitant]
     Active Substance: HYDROCHLOROTHIAZIDE\LISINOPRIL
  4. DOXYCYCLINE. [Concomitant]
     Active Substance: DOXYCYCLINE
  5. COLCHICINE. [Concomitant]
     Active Substance: COLCHICINE
  6. TRAMADOL. [Concomitant]
     Active Substance: TRAMADOL
  7. ALLOPURINOL. [Concomitant]
     Active Substance: ALLOPURINOL
  8. LENVIMA [Suspect]
     Active Substance: LENVATINIB
     Dosage: 12 MILLIGRAM, QD
     Route: 048
     Dates: start: 2019, end: 20190614
  9. AMLODIPINE [Concomitant]
     Active Substance: AMLODIPINE BESYLATE
  10. TURMERIC                           /01079601/ [Concomitant]
     Active Substance: HERBALS\TURMERIC
  11. CLINDAMYCIN. [Concomitant]
     Active Substance: CLINDAMYCIN
  12. ALPHA LIPOIC ACID [Concomitant]
     Active Substance: .ALPHA.-LIPOIC ACID
  13. METHYLPREDNISOLONE. [Concomitant]
     Active Substance: METHYLPREDNISOLONE
  14. PREDNISONE. [Suspect]
     Active Substance: PREDNISONE
     Indication: PRODUCT USED FOR UNKNOWN INDICATION
     Dosage: UNK
  15. LENVIMA [Suspect]
     Active Substance: LENVATINIB
     Indication: HEPATOCELLULAR CARCINOMA
     Dosage: 12 MILLIGRAM, QD
     Route: 048
     Dates: start: 20190118, end: 20190212
  16. GABAPENTIN. [Concomitant]
     Active Substance: GABAPENTIN
  17. ELIQUIS [Concomitant]
     Active Substance: APIXABAN
  18. ROSUVASTATIN. [Concomitant]
     Active Substance: ROSUVASTATIN
  19. LEVOTHYROXINE. [Concomitant]
     Active Substance: LEVOTHYROXINE
  20. TRADJENTA [Concomitant]
     Active Substance: LINAGLIPTIN
  21. OMEPRAZOLE. [Concomitant]
     Active Substance: OMEPRAZOLE
  22. MORPHINE [Concomitant]
     Active Substance: MORPHINE
  23. HUMALOG [Concomitant]
     Active Substance: INSULIN LISPRO
  24. VANCOMYCIN [Concomitant]
     Active Substance: VANCOMYCIN
  25. CODEINE-APAP [Concomitant]
  26. GLYBURIDE. [Concomitant]
     Active Substance: GLYBURIDE
  27. FUROSEMIDE. [Concomitant]
     Active Substance: FUROSEMIDE

REACTIONS (19)
  - Gout [Unknown]
  - Skin fissures [Unknown]
  - Decreased appetite [Unknown]
  - Arthralgia [Unknown]
  - Taste disorder [Unknown]
  - Joint swelling [Unknown]
  - Hypotension [Unknown]
  - Pain in extremity [Unknown]
  - Erythema [Unknown]
  - Headache [Unknown]
  - Musculoskeletal chest pain [Unknown]
  - Oedema peripheral [Unknown]
  - Acute kidney injury [Unknown]
  - Dehydration [Unknown]
  - Peripheral swelling [Unknown]
  - Blood pressure increased [Unknown]
  - Nausea [Unknown]
  - Blood glucose abnormal [Unknown]
  - Hypothyroidism [Unknown]

NARRATIVE: CASE EVENT DATE: 2019
